FAERS Safety Report 9950209 (Version 1)
Quarter: 2014Q1

REPORT INFORMATION
  Report Type: Spontaneous
  Country: FR (occurrence: FR)
  Receive Date: 20140304
  Receipt Date: 20140304
  Transmission Date: 20141002
  Serious: Yes (Life-Threatening)
  Sender: FDA-Public Use
  Company Number: FR-SA-2014SA026567

PATIENT
  Age: 71 Year
  Sex: Female

DRUGS (12)
  1. RAMIPRIL [Suspect]
     Indication: PRODUCT USED FOR UNKNOWN INDICATION
     Route: 048
  2. LASILIX [Suspect]
     Indication: PRODUCT USED FOR UNKNOWN INDICATION
     Dosage: SCORED TABLET
     Route: 048
  3. LODOZ [Suspect]
     Indication: HYPERTENSION
     Dosage: STRENGTH:10MG/6.25 MG
     Route: 048
  4. GLUCOPHAGE [Suspect]
     Indication: TYPE 2 DIABETES MELLITUS
     Dosage: STRENGTH: 850 MG
     Route: 048
  5. JANUVIA [Concomitant]
     Indication: TYPE 2 DIABETES MELLITUS
     Route: 048
  6. CORDARONE [Concomitant]
     Route: 048
  7. LEVOTHYROX [Concomitant]
     Route: 048
  8. SPIRIVA [Concomitant]
     Route: 055
  9. CYSTEINE/METHIONINE [Concomitant]
     Route: 048
  10. VOGALENE [Concomitant]
     Route: 048
  11. PREVISCAN [Concomitant]
     Route: 048
  12. PREVISCAN [Concomitant]

REACTIONS (2)
  - Lactic acidosis [Recovered/Resolved]
  - Renal failure acute [Recovered/Resolved]
